FAERS Safety Report 9149347 (Version 1)
Quarter: 2013Q1

REPORT INFORMATION
  Report Type: Spontaneous
  Country: AR (occurrence: AR)
  Receive Date: 20130308
  Receipt Date: 20130308
  Transmission Date: 20140127
  Serious: Yes (Other)
  Sender: FDA-Public Use
  Company Number: AR-PFIZER INC-2012326270

PATIENT
  Age: 49 Year
  Sex: Female

DRUGS (4)
  1. GENOTROPIN [Suspect]
     Dosage: 0.1 TO 0.5 MG
     Dates: start: 20060102, end: 2009
  2. GENOTROPIN [Suspect]
     Dosage: UNK
     Dates: start: 201205, end: 201205
  3. LEVOTHYROXINE [Concomitant]
  4. CLONAZEPAM [Concomitant]

REACTIONS (7)
  - Osteoporosis [Unknown]
  - Malaise [Unknown]
  - Fall [Unknown]
  - Dizziness [Unknown]
  - Dry skin [Unknown]
  - Alopecia [Unknown]
  - Overweight [Unknown]
